FAERS Safety Report 9783373 (Version 1)
Quarter: 2013Q4

REPORT INFORMATION
  Report Type: Spontaneous
  Country: US (occurrence: None)
  Receive Date: 20131223
  Receipt Date: 20131223
  Transmission Date: 20140711
  Serious: Yes (Other)
  Sender: FDA-Public Use
  Company Number: 2013US00853

PATIENT
  Sex: 0

DRUGS (3)
  1. CARBOPLATIN [Suspect]
     Indication: BREAST CANCER METASTATIC
     Dosage: WEEKLY (AREA UNDER THE CURVE EQUALS TO 2) ON DAYS 1, 8, 15 OF A 28-DAY CYCLE
  2. NAB-PACLITAXEL [Suspect]
     Indication: BREAST CANCER METASTATIC
     Dosage: WEEKLY (100MG/M2) ON DAYS 1, 8, 15 OF A 28-DAY CYCLE
  3. BEVACIZUMAB [Suspect]
     Indication: BREAST CANCER METASTATIC
     Dosage: BIWEEKLY ON DAYS 1, 15 (10 MG/KG) OF A 28-DAY CYCLE

REACTIONS (1)
  - Deep vein thrombosis [None]
